FAERS Safety Report 18097020 (Version 6)
Quarter: 2020Q4

REPORT INFORMATION
  Report Type: Spontaneous
  Country: US (occurrence: US)
  Receive Date: 20200730
  Receipt Date: 20201125
  Transmission Date: 20210113
  Serious: Yes (Hospitalization, Other)
  Sender: FDA-Public Use
  Company Number: US-SEATTLE GENETICS-2020SGN03343

PATIENT
  Sex: Female

DRUGS (1)
  1. TUKYSA [Suspect]
     Active Substance: TUCATINIB
     Indication: BREAST CANCER FEMALE
     Dosage: 1 DF

REACTIONS (7)
  - Loss of consciousness [Unknown]
  - Radiation associated haemorrhage [Unknown]
  - Breast haemorrhage [Unknown]
  - Hyperhidrosis [Unknown]
  - Hospice care [Unknown]
  - Breast swelling [Unknown]
  - Intentional dose omission [Unknown]
